FAERS Safety Report 15981049 (Version 1)
Quarter: 2019Q1

REPORT INFORMATION
  Report Type: Spontaneous
  Country: CN (occurrence: CN)
  Receive Date: 20190219
  Receipt Date: 20190219
  Transmission Date: 20190418
  Serious: Yes (Other)
  Sender: FDA-Public Use
  Company Number: CN-JNJFOC-20190221097

PATIENT
  Age: 79 Year
  Sex: Male

DRUGS (1)
  1. RISPERDAL [Suspect]
     Active Substance: RISPERIDONE
     Indication: MENTAL DISORDER
     Route: 048
     Dates: start: 20180908, end: 20180909

REACTIONS (2)
  - Choking [Recovered/Resolved]
  - Retching [Recovering/Resolving]

NARRATIVE: CASE EVENT DATE: 20180908
